FAERS Safety Report 19031499 (Version 1)
Quarter: 2021Q1

REPORT INFORMATION
  Report Type: Spontaneous
  Country: US (occurrence: US)
  Receive Date: 20210319
  Receipt Date: 20210319
  Transmission Date: 20210420
  Serious: No
  Sender: FDA-Public Use
  Company Number: US-BEH-2021129456

PATIENT
  Age: 59 Year
  Sex: Male

DRUGS (12)
  1. PRIVIGEN [Suspect]
     Active Substance: HUMAN IMMUNOGLOBULIN G
     Indication: POLYNEUROPATHY
     Dosage: UNK
     Route: 042
     Dates: start: 202011
  2. METOPROLOL SUCCINATE. [Concomitant]
     Active Substance: METOPROLOL SUCCINATE
  3. ESCITALOPRAM [Concomitant]
     Active Substance: ESCITALOPRAM OXALATE
  4. PREGABALIN. [Concomitant]
     Active Substance: PREGABALIN
  5. TEMAZEPAM. [Concomitant]
     Active Substance: TEMAZEPAM
  6. BRILINTA [Concomitant]
     Active Substance: TICAGRELOR
  7. DOXAZOSIN [Concomitant]
     Active Substance: DOXAZOSIN MESYLATE
  8. PRIVIGEN [Suspect]
     Active Substance: HUMAN IMMUNOGLOBULIN G
     Dosage: 200 GRAM OVER 2 DAYS, QMT, EVERY 4 WEEKS
     Route: 042
     Dates: start: 20210115
  9. BUPRENORPHINE. [Concomitant]
     Active Substance: BUPRENORPHINE
  10. LOSARTAN POTASSIUM. [Concomitant]
     Active Substance: LOSARTAN POTASSIUM
  11. EPLERENONE. [Concomitant]
     Active Substance: EPLERENONE
  12. MYCOPHENOLATE [Concomitant]
     Active Substance: MYCOPHENOLIC ACID

REACTIONS (4)
  - Dyspnoea [Not Recovered/Not Resolved]
  - No adverse event [Unknown]
  - Influenza like illness [Not Recovered/Not Resolved]
  - Off label use [Unknown]

NARRATIVE: CASE EVENT DATE: 20210226
